FAERS Safety Report 23149960 (Version 7)
Quarter: 2024Q2

REPORT INFORMATION
  Report Type: Spontaneous
  Country: US (occurrence: US)
  Receive Date: 20231106
  Receipt Date: 20240409
  Transmission Date: 20240716
  Serious: Yes (Other)
  Sender: FDA-Public Use
  Company Number: US-PFIZER INC-PV202300093859

PATIENT
  Age: 90 Year
  Sex: Female
  Weight: 71.202 kg

DRUGS (4)
  1. BRAFTOVI [Suspect]
     Active Substance: ENCORAFENIB
     Indication: Colon cancer
     Dosage: 150 MG, DAILY
     Route: 048
  2. BRAFTOVI [Suspect]
     Active Substance: ENCORAFENIB
     Indication: Colon cancer
     Dosage: 300 MG, DAILY (THEN IF TOLERATED INCREASE TO 4 CAPS (300MG) DAILY)
     Route: 048
  3. BRAFTOVI [Suspect]
     Active Substance: ENCORAFENIB
     Indication: Colon cancer
     Dosage: 225 MG, DAILY (TAKE 3 CAPSULES)
     Route: 048
     Dates: start: 2023
  4. BRAFTOVI [Suspect]
     Active Substance: ENCORAFENIB
     Dosage: 300 MG, DAILY (TAKE 4 CAPSULES (300 MG) DAILY)
     Route: 048

REACTIONS (2)
  - Carcinoembryonic antigen increased [Unknown]
  - Nasopharyngitis [Unknown]
